FAERS Safety Report 7305806-7 (Version None)
Quarter: 2011Q1

REPORT INFORMATION
  Report Type: 
  Country: None (occurrence: None)
  Receive Date: 20110222
  Receipt Date: 20110214
  Transmission Date: 20110831
  Serious: Yes (Other)
  Sender: FDA-Public Use
  Company Number: US-ROCHE-738892

PATIENT
  Sex: Female
  Weight: 104.3 kg

DRUGS (3)
  1. SOTRET [Suspect]
     Indication: ACNE
     Route: 065
  2. ACCUTANE [Suspect]
     Indication: ACNE
     Route: 065
     Dates: start: 19970101, end: 20060101
  3. ACCUTANE [Suspect]
     Route: 065
     Dates: start: 20070101, end: 20080101

REACTIONS (6)
  - DEPRESSION [None]
  - COLITIS ULCERATIVE [None]
  - GASTROINTESTINAL INJURY [None]
  - CERVICAL DYSPLASIA [None]
  - INFLAMMATORY BOWEL DISEASE [None]
  - NEPHROLITHIASIS [None]
